FAERS Safety Report 16879577 (Version 1)
Quarter: 2019Q4

REPORT INFORMATION
  Report Type: Spontaneous
  Country: ES (occurrence: ES)
  Receive Date: 20191003
  Receipt Date: 20191003
  Transmission Date: 20200122
  Serious: Yes (Hospitalization)
  Sender: FDA-Public Use
  Company Number: ES-TEVA-2019-ES-1116100

PATIENT
  Age: 57 Year
  Sex: Female

DRUGS (1)
  1. TRAMADOL (2389A) [Suspect]
     Active Substance: TRAMADOL
     Indication: BACK PAIN
     Dosage: 50 MG
     Dates: start: 20190806, end: 20190807

REACTIONS (3)
  - Hyperhidrosis [Recovered/Resolved]
  - Palatal oedema [Recovered/Resolved]
  - Dizziness [Recovered/Resolved]

NARRATIVE: CASE EVENT DATE: 20190806
